FAERS Safety Report 15156264 (Version 1)
Quarter: 2018Q3

REPORT INFORMATION
  Report Type: Report from Study
  Country: US (occurrence: US)
  Receive Date: 20180717
  Receipt Date: 20180717
  Transmission Date: 20181010
  Serious: Yes (Other)
  Sender: FDA-Public Use
  Company Number: US-SHIRE-US201825651

PATIENT
  Age: 64 Year
  Sex: Female

DRUGS (1)
  1. HUMAN IMMUNOGLOBULIN; HYALURONIDASE [Suspect]
     Active Substance: HUMAN IMMUNOGLOBULIN G\HYALURONIDASE RECOMBINANT HUMAN
     Indication: PRIMARY IMMUNODEFICIENCY SYNDROME
     Route: 065

REACTIONS (9)
  - Bronchitis [Unknown]
  - Infusion site extravasation [Unknown]
  - Feeling abnormal [Unknown]
  - Vomiting [Unknown]
  - Upper respiratory tract infection [Unknown]
  - Nausea [Unknown]
  - Infusion site vesicles [Unknown]
  - Malaise [Unknown]
  - Fatigue [Unknown]

NARRATIVE: CASE EVENT DATE: 20180709
